FAERS Safety Report 24276289 (Version 1)
Quarter: 2024Q3

REPORT INFORMATION
  Report Type: Spontaneous
  Country: TN (occurrence: TN)
  Receive Date: 20240903
  Receipt Date: 20240903
  Transmission Date: 20241016
  Serious: Yes (Other)
  Sender: Carnegie Pharmaceuticals
  Company Number: TN-CARNEGIE-000019

PATIENT
  Age: 66 Year
  Sex: Female

DRUGS (1)
  1. LATANOPROST [Suspect]
     Active Substance: LATANOPROST
     Indication: Open angle glaucoma
     Route: 065
     Dates: start: 2016

REACTIONS (3)
  - Cutaneous sarcoidosis [Unknown]
  - Achromotrichia acquired [Unknown]
  - Hypertrichosis [Unknown]
